FAERS Safety Report 9262054 (Version 1)
Quarter: 2013Q2

REPORT INFORMATION
  Report Type: Spontaneous
  Country: CH (occurrence: CH)
  Receive Date: 20130429
  Receipt Date: 20130429
  Transmission Date: 20140414
  Serious: Yes (Other)
  Sender: FDA-Public Use
  Company Number: CH-LUNDBECK-DKLU1090622

PATIENT
  Sex: 0

DRUGS (1)
  1. SABRIL (FOR ORAL SOLUTION) [Suspect]
     Indication: INFANTILE SPASMS

REACTIONS (3)
  - Extrapyramidal disorder [Unknown]
  - Encephalopathy [Unknown]
  - Nuclear magnetic resonance imaging brain abnormal [Unknown]
